FAERS Safety Report 9517091 (Version 7)
Quarter: 2015Q1

REPORT INFORMATION
  Report Type: Spontaneous
  Country: US (occurrence: US)
  Receive Date: 20130911
  Receipt Date: 20150130
  Transmission Date: 20150721
  Serious: Yes (Hospitalization, Disabling, Other)
  Sender: FDA-Public Use
  Company Number: US-009507513-1309USA003677

PATIENT
  Sex: Female
  Weight: 70.3 kg

DRUGS (6)
  1. ALENDRONATE SODIUM. [Suspect]
     Active Substance: ALENDRONATE SODIUM
     Indication: OSTEOPOROSIS PROPHYLAXIS
     Dosage: 70 MG, UNK
     Route: 048
     Dates: start: 20080620, end: 20110126
  2. PREMPRO [Concomitant]
     Active Substance: ESTROGENS, CONJUGATED\MEDROXYPROGESTERONE ACETATE
     Indication: HORMONE REPLACEMENT THERAPY
     Dosage: UNK
     Dates: start: 1998, end: 2007
  3. FOSAMAX [Suspect]
     Active Substance: ALENDRONATE SODIUM
     Indication: OSTEOPOROSIS PROPHYLAXIS
     Dosage: 70 MG, QW
     Route: 048
     Dates: start: 20000101, end: 20080619
  4. CALCIUM (UNSPECIFIED) [Concomitant]
     Active Substance: CALCIUM
     Dosage: UNK, QD
     Dates: start: 1998
  5. VITAMINS (UNSPECIFIED) [Concomitant]
     Active Substance: VITAMINS
     Dosage: UNK, QD
     Dates: start: 1998
  6. VITAMIN D [Concomitant]
     Active Substance: CHOLECALCIFEROL
     Dosage: UNK, QD
     Dates: start: 1998

REACTIONS (30)
  - Device breakage [Unknown]
  - Cholecystectomy [Unknown]
  - Medical device removal [Unknown]
  - Forearm fracture [Unknown]
  - Fracture nonunion [Recovering/Resolving]
  - Open reduction of fracture [Unknown]
  - Osteoporosis [Unknown]
  - Removal of internal fixation [Unknown]
  - Urinary tract infection [Unknown]
  - Intramedullary rod insertion [Unknown]
  - Intramedullary rod insertion [Unknown]
  - Tibia fracture [Recovered/Resolved]
  - Cerumen impaction [Unknown]
  - Osteoarthritis [Unknown]
  - Neuropathy peripheral [Unknown]
  - Bone graft [Unknown]
  - Herpes zoster [Unknown]
  - Osteopenia [Unknown]
  - Exostosis [Unknown]
  - Internal fixation of fracture [Unknown]
  - Low turnover osteopathy [Not Recovered/Not Resolved]
  - Femur fracture [Recovering/Resolving]
  - Depression [Unknown]
  - Vitamin D deficiency [Unknown]
  - Generalised anxiety disorder [Unknown]
  - Hypothyroidism [Unknown]
  - Hyperlipidaemia [Unknown]
  - Cerumen impaction [Unknown]
  - Surgery [Unknown]
  - Haematocrit decreased [Unknown]

NARRATIVE: CASE EVENT DATE: 2006
